FAERS Safety Report 9272812 (Version 3)
Quarter: 2013Q3

REPORT INFORMATION
  Report Type: Report from Study
  Country: US (occurrence: US)
  Receive Date: 20130506
  Receipt Date: 20130729
  Transmission Date: 20140515
  Serious: Yes (Hospitalization)
  Sender: FDA-Public Use
  Company Number: US-ASTRAZENECA-2013SE29512

PATIENT
  Age: 24806 Day
  Sex: Male

DRUGS (9)
  1. AZD6140 [Suspect]
     Indication: CORONARY ARTERY DISEASE
     Route: 048
     Dates: start: 20110317, end: 20130418
  2. ASPIRIN [Suspect]
     Route: 048
     Dates: end: 20130418
  3. NITROGLYCERINE [Concomitant]
     Indication: ANGINA PECTORIS
     Route: 048
  4. LIPITOR [Concomitant]
     Indication: HYPERLIPIDAEMIA
     Route: 048
  5. EXFORGE HCT [Concomitant]
     Indication: HYPERTENSION
     Route: 048
     Dates: start: 20120813
  6. FISH OIL [Concomitant]
     Indication: HYPERLIPIDAEMIA
     Route: 048
     Dates: start: 20130212
  7. VIAGRA [Concomitant]
     Indication: ERECTILE DYSFUNCTION
     Route: 048
  8. CARVEDILOL [Concomitant]
     Indication: HYPERTENSION
     Route: 048
     Dates: start: 20110215
  9. FLUOXETINE [Concomitant]
     Indication: DEPRESSION
     Route: 048

REACTIONS (1)
  - Oesophagitis haemorrhagic [Recovered/Resolved]
